FAERS Safety Report 5741030-7 (Version None)
Quarter: 2008Q2

REPORT INFORMATION
  Report Type: 
  Country: None (occurrence: None)
  Receive Date: 20080513
  Receipt Date: 20080428
  Transmission Date: 20081010
  Serious: No
  Sender: FDA-Public Use
  Company Number: S07-UKI-05229-01

PATIENT
  Age: 39 Year
  Sex: Female
  Weight: 66.8 kg

DRUGS (1)
  1. ESCITALOPRAM [Suspect]
     Dosage: 5 MG QD PO
     Route: 048
     Dates: end: 20070101

REACTIONS (4)
  - CAESAREAN SECTION [None]
  - DRUG EXPOSURE DURING PREGNANCY [None]
  - PREGNANCY [None]
  - PROLONGED LABOUR [None]
